FAERS Safety Report 23741857 (Version 1)
Quarter: 2024Q2

REPORT INFORMATION
  Report Type: Spontaneous
  Country: KR (occurrence: KR)
  Receive Date: 20240415
  Receipt Date: 20240415
  Transmission Date: 20240715
  Serious: Yes (Other)
  Sender: FDA-Public Use
  Company Number: KR-KYOWAKIRIN-2024KK008037

PATIENT
  Age: 67 Year
  Sex: Male

DRUGS (4)
  1. NEULASTA [Suspect]
     Active Substance: PEGFILGRASTIM
     Indication: Hodgkin^s disease nodular sclerosis
     Dosage: UNK
     Route: 065
     Dates: start: 20211113, end: 20220420
  2. DACARBAZINE [Suspect]
     Active Substance: DACARBAZINE
     Indication: Hodgkin^s disease nodular sclerosis
     Dosage: 375 MILLIGRAM/SQ. METER
     Route: 065
     Dates: start: 20211113, end: 20220420
  3. DOXORUBICIN HYDROCHLORIDE [Suspect]
     Active Substance: DOXORUBICIN HYDROCHLORIDE
     Indication: Hodgkin^s disease nodular sclerosis
     Dosage: 25 MILLIGRAM/SQ. METER
     Route: 065
     Dates: start: 20211113, end: 20220420
  4. VINBLASTINE SULFATE [Suspect]
     Active Substance: VINBLASTINE SULFATE
     Indication: Hodgkin^s disease nodular sclerosis
     Dosage: 6 MILLIGRAM/SQ. METER
     Route: 065
     Dates: start: 20211113, end: 20220420

REACTIONS (4)
  - Vitreous detachment [Unknown]
  - Neuropathy peripheral [Unknown]
  - Peripheral venous disease [Unknown]
  - Sleep disorder [Unknown]
